FAERS Safety Report 10501132 (Version 1)
Quarter: 2014Q4

REPORT INFORMATION
  Report Type: Spontaneous
  Country: US (occurrence: None)
  Receive Date: 20141006
  Receipt Date: 20141006
  Transmission Date: 20150528
  Serious: No
  Sender: FDA-Public Use
  Company Number: None

PATIENT
  Age: 56 Year
  Sex: Male
  Weight: 84.6 kg

DRUGS (1)
  1. DOCUSATE [Suspect]
     Active Substance: DOCUSATE
     Indication: NEUROGENIC BOWEL
     Dosage: 586 MG UD RECTAL
     Route: 054

REACTIONS (3)
  - Constipation [None]
  - Device issue [None]
  - Product quality issue [None]
